FAERS Safety Report 9401530 (Version 2)
Quarter: 2013Q3

REPORT INFORMATION
  Report Type: Report from Study
  Country: JP (occurrence: JP)
  Receive Date: 20130716
  Receipt Date: 20130823
  Transmission Date: 20140515
  Serious: Yes (Hospitalization)
  Sender: FDA-Public Use
  Company Number: JP-ROCHE-1248237

PATIENT
  Age: 66 Year
  Sex: Female
  Weight: 69 kg

DRUGS (8)
  1. PEG-INTERFERON ALFA 2A [Suspect]
     Indication: CHRONIC HEPATITIS C
     Route: 058
     Dates: start: 20110310, end: 20120726
  2. RIBAVIRIN [Suspect]
     Indication: CHRONIC HEPATITIS C
     Route: 048
     Dates: start: 20110310, end: 20120112
  3. RIBAVIRIN [Suspect]
     Indication: CHRONIC HEPATITIS C
     Route: 048
     Dates: start: 20120113, end: 20120726
  4. BLOPRESS [Concomitant]
     Route: 048
  5. ALFAROL [Concomitant]
     Route: 048
     Dates: start: 20110310
  6. TAKEPRON [Concomitant]
     Route: 048
  7. HALCION [Concomitant]
     Route: 048
  8. MAGMITT [Concomitant]
     Route: 048

REACTIONS (4)
  - IgA nephropathy [Recovering/Resolving]
  - Proteinuria [Recovered/Resolved]
  - Haemoglobin decreased [Recovered/Resolved]
  - Hypertension [Recovering/Resolving]
